FAERS Safety Report 9897133 (Version 1)
Quarter: 2014Q1

REPORT INFORMATION
  Report Type: Spontaneous
  Country: DE (occurrence: DE)
  Receive Date: 20140214
  Receipt Date: 20140214
  Transmission Date: 20141002
  Serious: Yes (Other)
  Sender: FDA-Public Use
  Company Number: DE-DRREDDYS-GER/GER/14/0038046

PATIENT
  Age: 41 Year
  Sex: Female

DRUGS (5)
  1. CITALOPRAM [Suspect]
     Indication: PANIC ATTACK
     Route: 048
     Dates: start: 20111226
  2. AMITRIPTYLINE [Suspect]
     Indication: BORDERLINE PERSONALITY DISORDER
     Route: 048
  3. LYRICA [Suspect]
     Indication: PSYCHOGENIC PAIN DISORDER
     Route: 048
     Dates: start: 20111226, end: 20120927
  4. DOMINAL FORTE [Suspect]
     Indication: PANIC ATTACK
     Route: 048
     Dates: start: 20111226, end: 20120927
  5. TAVOR [Suspect]
     Indication: PANIC ATTACK
     Route: 048
     Dates: start: 20111226, end: 20120927

REACTIONS (3)
  - Gestational diabetes [Unknown]
  - Caesarean section [Unknown]
  - Exposure during pregnancy [Unknown]
